FAERS Safety Report 8327636-X (Version None)
Quarter: 2012Q2

REPORT INFORMATION
  Report Type: 
  Country: None (occurrence: None)
  Receive Date: 20120502
  Receipt Date: 20120423
  Transmission Date: 20120825
  Serious: Yes (Hospitalization)
  Sender: FDA-Public Use
  Company Number: US-BAYER-2011-123874

PATIENT
  Age: 22 Year
  Sex: Female
  Weight: 79.55 kg

DRUGS (10)
  1. ONDANSETRON [Concomitant]
     Dosage: 1 TAB EVERY 8 HOURS AS NEEDED
     Route: 048
  2. TORADOL [Concomitant]
     Dosage: 30 MG, UNK
     Route: 042
  3. YAZ [Suspect]
     Indication: CONTRACEPTION
     Dosage: UNK
     Dates: start: 20061107, end: 20100114
  4. YASMIN [Suspect]
     Dosage: UNK
     Dates: start: 20100106
  5. CLARITIN [Concomitant]
  6. YAZ [Suspect]
     Indication: HORMONE LEVEL ABNORMAL
  7. PERCOCET [Concomitant]
     Dosage: 5-325 MG; 1 TABLET EVERY 6 HOURS PM
     Route: 048
     Dates: start: 20100518
  8. ZOSYN [Concomitant]
     Dosage: 4.5 G, UNK
     Route: 042
  9. NUVARING [Concomitant]
  10. ONDANSETRON [Concomitant]
     Dosage: 4 MG, UNK
     Route: 042

REACTIONS (7)
  - BACK PAIN [None]
  - ABDOMINAL INFECTION [None]
  - CHOLELITHIASIS [None]
  - GALLBLADDER DISORDER [None]
  - CHOLECYSTITIS ACUTE [None]
  - WHITE BLOOD CELL COUNT INCREASED [None]
  - ABDOMINAL PAIN UPPER [None]
